FAERS Safety Report 14273050 (Version 1)
Quarter: 2017Q4

REPORT INFORMATION
  Report Type: Spontaneous
  Country: JP (occurrence: JP)
  Receive Date: 20171211
  Receipt Date: 20171211
  Transmission Date: 20180321
  Serious: Yes (Other)
  Sender: FDA-Public Use
  Company Number: JP-OTSUKA-007279

PATIENT
  Age: 31 Year
  Sex: Female
  Weight: 76 kg

DRUGS (7)
  1. OPC-14597 [Suspect]
     Active Substance: CILOSTAZOL
     Indication: SCHIZOPHRENIA
     Dosage: 6 MG, QD
     Route: 048
     Dates: start: 20090416, end: 20090610
  2. OPC-14597 [Suspect]
     Active Substance: CILOSTAZOL
     Dosage: 12 MG, QD
     Route: 048
     Dates: start: 20090611, end: 20090911
  3. RISPERIDONE. [Concomitant]
     Active Substance: RISPERIDONE
     Indication: PRODUCT USED FOR UNKNOWN INDICATION
     Dosage: RISPERIDONE TABS
     Route: 065
     Dates: start: 20090707, end: 20090721
  4. OPC-14597 [Suspect]
     Active Substance: CILOSTAZOL
     Dosage: 12 MG, QD
     Route: 048
     Dates: start: 20090914
  5. OPC-14597 [Suspect]
     Active Substance: CILOSTAZOL
     Dosage: 72 MG, SINGLE
     Route: 048
     Dates: start: 20090912, end: 20090912
  6. RISPERIDONE. [Concomitant]
     Active Substance: RISPERIDONE
     Indication: SCHIZOPHRENIA
     Dosage: 2 MG, QD
     Route: 048
     Dates: start: 20090707, end: 20090721
  7. AKINETON [Concomitant]
     Active Substance: BIPERIDEN HYDROCHLORIDE
     Indication: PROPHYLAXIS
     Dosage: 1 MG, BID
     Route: 048
     Dates: start: 20090707, end: 20090721

REACTIONS (4)
  - Suicide attempt [Recovered/Resolved]
  - Intentional overdose [Unknown]
  - Normal newborn [Unknown]
  - Maternal exposure during pregnancy [Recovered/Resolved]

NARRATIVE: CASE EVENT DATE: 20090912
